FAERS Safety Report 20050260 (Version 1)
Quarter: 2021Q4

REPORT INFORMATION
  Report Type: Spontaneous
  Country: JP (occurrence: JP)
  Receive Date: 20211109
  Receipt Date: 20211109
  Transmission Date: 20220303
  Serious: Yes (Other)
  Sender: FDA-Public Use
  Company Number: JP-OTSUKA-010883

PATIENT
  Age: 20 Year
  Sex: Female

DRUGS (37)
  1. ABILIFY [Suspect]
     Active Substance: ARIPIPRAZOLE
     Indication: Schizophrenia
     Dosage: 24 MG, QD
     Route: 048
     Dates: start: 20100830
  2. ABILIFY [Suspect]
     Active Substance: ARIPIPRAZOLE
     Indication: Post-traumatic stress disorder
  3. ABILIFY [Suspect]
     Active Substance: ARIPIPRAZOLE
     Indication: Hallucination
  4. VALPROATE SODIUM [Concomitant]
     Active Substance: VALPROATE SODIUM
     Indication: Schizophrenia
     Dosage: 200 MG, QD
     Route: 048
     Dates: start: 20100830
  5. VALPROATE SODIUM [Concomitant]
     Active Substance: VALPROATE SODIUM
     Indication: Post-traumatic stress disorder
  6. VALPROATE SODIUM [Concomitant]
     Active Substance: VALPROATE SODIUM
     Indication: Hallucination
  7. CHLORPROMAZINE HYDROCHLORIDE\PHENOBARBITAL\PROMETHAZINE [Concomitant]
     Active Substance: CHLORPROMAZINE HYDROCHLORIDE\PHENOBARBITAL\PROMETHAZINE
     Indication: Schizophrenia
     Dosage: UNK, QD
     Route: 048
     Dates: start: 20100830
  8. CHLORPROMAZINE HYDROCHLORIDE\PHENOBARBITAL\PROMETHAZINE [Concomitant]
     Active Substance: CHLORPROMAZINE HYDROCHLORIDE\PHENOBARBITAL\PROMETHAZINE
     Indication: Post-traumatic stress disorder
  9. CHLORPROMAZINE HYDROCHLORIDE\PHENOBARBITAL\PROMETHAZINE [Concomitant]
     Active Substance: CHLORPROMAZINE HYDROCHLORIDE\PHENOBARBITAL\PROMETHAZINE
     Indication: Hallucination
  10. SENNOSIDES A AND B [Concomitant]
     Active Substance: SENNOSIDES A AND B
     Indication: Product used for unknown indication
     Dosage: UNK, PRN
     Route: 048
     Dates: start: 20100830
  11. HALOPERIDOL [Concomitant]
     Active Substance: HALOPERIDOL
     Indication: Schizophrenia
     Dosage: 1.5 MG, QD
     Route: 048
     Dates: start: 20100816
  12. HALOPERIDOL [Concomitant]
     Active Substance: HALOPERIDOL
     Indication: Post-traumatic stress disorder
  13. HALOPERIDOL [Concomitant]
     Active Substance: HALOPERIDOL
     Indication: Hallucination
  14. LEVOMEPROMAZINE MALEATE [Concomitant]
     Active Substance: LEVOMEPROMAZINE MALEATE
     Indication: Schizophrenia
     Dosage: 75 UG, DAILY DOSE
     Route: 048
     Dates: start: 20100816
  15. LEVOMEPROMAZINE MALEATE [Concomitant]
     Active Substance: LEVOMEPROMAZINE MALEATE
     Indication: Post-traumatic stress disorder
  16. LEVOMEPROMAZINE MALEATE [Concomitant]
     Active Substance: LEVOMEPROMAZINE MALEATE
     Indication: Hallucination
  17. PRIMPERAN [Concomitant]
     Active Substance: METOCLOPRAMIDE HYDROCHLORIDE
     Indication: Product used for unknown indication
     Dosage: 5 MG, QD
     Route: 048
     Dates: start: 20100816
  18. LUDIOMIL [Concomitant]
     Active Substance: MAPROTILINE HYDROCHLORIDE
     Indication: Schizophrenia
     Dosage: 25 MG, QD
     Route: 048
     Dates: start: 20100816
  19. LUDIOMIL [Concomitant]
     Active Substance: MAPROTILINE HYDROCHLORIDE
     Indication: Post-traumatic stress disorder
  20. LUDIOMIL [Concomitant]
     Active Substance: MAPROTILINE HYDROCHLORIDE
     Indication: Hallucination
  21. PYRETHIA [Concomitant]
     Active Substance: PROMETHAZINE HYDROCHLORIDE
     Indication: Schizophrenia
     Dosage: 25 MG, QD
     Route: 048
     Dates: start: 20100816
  22. PYRETHIA [Concomitant]
     Active Substance: PROMETHAZINE HYDROCHLORIDE
     Indication: Post-traumatic stress disorder
  23. PYRETHIA [Concomitant]
     Active Substance: PROMETHAZINE HYDROCHLORIDE
     Indication: Hallucination
  24. RABEPRAZOLE SODIUM [Concomitant]
     Active Substance: RABEPRAZOLE SODIUM
     Indication: Schizophrenia
     Dosage: 20 MG, QD
     Route: 048
     Dates: start: 20100816
  25. RABEPRAZOLE SODIUM [Concomitant]
     Active Substance: RABEPRAZOLE SODIUM
     Indication: Post-traumatic stress disorder
  26. RABEPRAZOLE SODIUM [Concomitant]
     Active Substance: RABEPRAZOLE SODIUM
     Indication: Hallucination
  27. NEUROVITAN [CYANOCOBALAMIN;OCTOTIAMINE;PYRIDOXINE HYDROCHLORIDE;RIBOFL [Concomitant]
     Indication: Schizophrenia
     Dosage: UNK, TID
     Route: 048
     Dates: start: 20100816
  28. NEUROVITAN [CYANOCOBALAMIN;OCTOTIAMINE;PYRIDOXINE HYDROCHLORIDE;RIBOFL [Concomitant]
     Indication: Post-traumatic stress disorder
  29. NEUROVITAN [CYANOCOBALAMIN;OCTOTIAMINE;PYRIDOXINE HYDROCHLORIDE;RIBOFL [Concomitant]
     Indication: Hallucination
  30. MAGLAX [MAGNESIUM OXIDE] [Concomitant]
     Indication: Product used for unknown indication
     Dosage: 1250 MG, QD
     Route: 048
     Dates: start: 20100816
  31. CERCINE [Concomitant]
     Active Substance: DIAZEPAM
     Indication: Schizophrenia
     Dosage: UNK, PRN
     Route: 048
     Dates: start: 20100816
  32. CERCINE [Concomitant]
     Active Substance: DIAZEPAM
     Indication: Post-traumatic stress disorder
  33. CERCINE [Concomitant]
     Active Substance: DIAZEPAM
     Indication: Hallucination
  34. METOCLOPRAMIDE HYDROCHLORIDE [Concomitant]
     Active Substance: METOCLOPRAMIDE HYDROCHLORIDE
     Indication: Product used for unknown indication
     Dosage: TABLET
     Route: 048
     Dates: start: 20100816
  35. LEVOMEPROMAZINE MALEATE [Concomitant]
     Active Substance: LEVOMEPROMAZINE MALEATE
     Indication: Product used for unknown indication
     Dosage: TABLET
     Route: 065
     Dates: start: 20100816
  36. RISPERIDONE [Concomitant]
     Active Substance: RISPERIDONE
     Indication: Product used for unknown indication
     Dosage: ORAL SOLUTION
     Route: 065
  37. VALPROATE SODIUM [Concomitant]
     Active Substance: VALPROATE SODIUM
     Indication: Product used for unknown indication
     Dosage: TAB
     Route: 065
     Dates: start: 20100830

REACTIONS (5)
  - Haemorrhage [Unknown]
  - Angiopathy [Unknown]
  - Anaemia [Unknown]
  - Tachycardia [Not Recovered/Not Resolved]
  - Orthostatic hypotension [Not Recovered/Not Resolved]

NARRATIVE: CASE EVENT DATE: 20100831
